FAERS Safety Report 26041028 (Version 3)
Quarter: 2025Q4

REPORT INFORMATION
  Report Type: Report from Study
  Country: MX (occurrence: MX)
  Receive Date: 20251113
  Receipt Date: 20251215
  Transmission Date: 20260117
  Serious: Yes (Other)
  Sender: DAIICHI
  Company Number: MX-AstraZeneca-CH-00857278A

PATIENT
  Sex: Female
  Weight: 87 kg

DRUGS (7)
  1. ENHERTU [Suspect]
     Active Substance: FAM-TRASTUZUMAB DERUXTECAN-NXKI
     Indication: HER2 positive breast cancer
     Dosage: 580 MILLIGRAM, Q3W (EVERY 21 DAYS)
     Route: 042
     Dates: start: 202408, end: 202507
  2. ENHERTU [Suspect]
     Active Substance: FAM-TRASTUZUMAB DERUXTECAN-NXKI
     Indication: Metastases to bone
     Dosage: 350 MG, ONCE EVERY 3 WK
     Route: 042
     Dates: start: 202409
  3. ENHERTU [Suspect]
     Active Substance: FAM-TRASTUZUMAB DERUXTECAN-NXKI
     Dosage: 580 MILLIGRAM, Q3W (EVERY 21 DAYS)
     Route: 042
     Dates: start: 20250820
  4. LOSARTAN [Concomitant]
     Active Substance: LOSARTAN
     Indication: Product used for unknown indication
     Dosage: 50 MG, QD
     Route: 065
  5. ACETAMINOPHEN\TRAMADOL [Concomitant]
     Active Substance: ACETAMINOPHEN\TRAMADOL
     Indication: Pain
     Dosage: UNK
     Route: 065
  6. NESAJAR [Concomitant]
     Indication: Colitis
     Dosage: UNK
     Route: 065
  7. ERYTHROPOIETIN [EPOETIN BETA] [Concomitant]
     Indication: Blood disorder
     Dosage: 200,000 UNITS EVERY THIRD DAY
     Route: 065

REACTIONS (12)
  - Liver injury [Unknown]
  - Metastases to lung [Not Recovered/Not Resolved]
  - Hepatic cirrhosis [Recovering/Resolving]
  - Splenomegaly [Recovering/Resolving]
  - Swelling face [Recovered/Resolved]
  - Peripheral swelling [Recovered/Resolved]
  - Nausea [Recovered/Resolved]
  - Haemoglobin decreased [Not Recovered/Not Resolved]
  - Platelet count decreased [Not Recovered/Not Resolved]
  - Abdominal distension [Recovered/Resolved]
  - Weight decreased [Not Recovered/Not Resolved]
  - Angiopathy [Not Recovered/Not Resolved]

NARRATIVE: CASE EVENT DATE: 20240101
